FAERS Safety Report 8142483-X (Version None)
Quarter: 2012Q1

REPORT INFORMATION
  Report Type: 
  Country: None (occurrence: None)
  Receive Date: 20120216
  Receipt Date: 20120201
  Transmission Date: 20120608
  Serious: Yes (Other)
  Sender: FDA-Public Use
  Company Number: GB-AMGEN-US136061

PATIENT
  Age: 40 Year
  Sex: Female
  Weight: 60 kg

DRUGS (9)
  1. FOLIC ACID [Suspect]
     Dosage: UNK UNK, QD (ONE PER DAY)
     Route: 065
  2. ENBREL [Suspect]
     Indication: PSORIATIC ARTHROPATHY
     Dosage: 25 MG, 2 TIMES/WK
     Route: 058
     Dates: start: 20041210
  3. CITALOPRAM HYDROBROMIDE [Suspect]
     Dosage: UNK UNK, UNK
     Route: 065
  4. PLAQUENIL [Suspect]
     Indication: RHEUMATOID ARTHRITIS
     Dosage: 200 MG, QD
     Route: 048
  5. CLOPIDOGREL [Suspect]
     Dosage: UNK UNK, UNK(ONE DOSE , ONCE DAILY)
     Route: 065
  6. DIHYDROCODEINE BITARTRATE INJ [Suspect]
     Dosage: UNK UNK, UNK(ONE DOSE ONCE DAILY)
     Route: 048
  7. DICLOFENAC SODIUM [Suspect]
     Dosage: UNK UNK, UNK
     Route: 065
  8. METHOTREXATE [Suspect]
     Indication: RHEUMATOID ARTHRITIS
     Dosage: 25 MG, QD
     Route: 058
  9. DICLOFENAC [Suspect]
     Dosage: 75 MG, BID
     Route: 065

REACTIONS (1)
  - GALACTORRHOEA [None]
